FAERS Safety Report 7861345-6 (Version None)
Quarter: 2011Q4

REPORT INFORMATION
  Report Type: 
  Country: None (occurrence: None)
  Receive Date: 20111026
  Receipt Date: 20111013
  Transmission Date: 20120403
  Serious: Yes (Hospitalization)
  Sender: FDA-Public Use
  Company Number: 2011-4223

PATIENT
  Age: 64 Year
  Sex: Male

DRUGS (1)
  1. APO-GO AMPOULES (APO-GO) (APOMORPHINE HYDROCHLORIDE) (APOMORPHINE HYDR [Suspect]
     Indication: PARKINSON'S DISEASE
     Dosage: 100MG (100MG OVER 24 HOURS), SUBCUTANEOUS
     Route: 058

REACTIONS (2)
  - LOSS OF CONSCIOUSNESS [None]
  - ACCIDENTAL OVERDOSE [None]
